FAERS Safety Report 8378618 (Version 3)
Quarter: 2013Q3

REPORT INFORMATION
  Report Type: Spontaneous
  Country: US (occurrence: US)
  Receive Date: 20120129
  Receipt Date: 20130906
  Transmission Date: 20140515
  Serious: Yes (Hospitalization, Other)
  Sender: FDA-Public Use
  Company Number: US-ABBOTT-11P-163-0857567-00

PATIENT
  Sex: Male

DRUGS (4)
  1. HUMIRA 40 MG/ 0.8 ML PRE-FILLED SYRINGE [Suspect]
     Indication: CROHN^S DISEASE
  2. HUMIRA 40 MG/ 0.8 ML PRE-FILLED SYRINGE [Suspect]
     Indication: INFLAMMATORY BOWEL DISEASE
  3. CIMZIA [Suspect]
     Indication: CROHN^S DISEASE
  4. REMICADE [Suspect]
     Indication: CROHN^S DISEASE

REACTIONS (13)
  - Lung disorder [Unknown]
  - Organising pneumonia [Recovered/Resolved]
  - Pneumonia [Unknown]
  - Bedridden [Unknown]
  - Drug ineffective [Unknown]
  - Arthralgia [Unknown]
  - Adverse drug reaction [Unknown]
  - Dyspnoea [Unknown]
  - Pyrexia [Unknown]
  - Organising pneumonia [Unknown]
  - Pulmonary granuloma [Unknown]
  - Bronchitis [Unknown]
  - Lung neoplasm malignant [Unknown]
